FAERS Safety Report 7529301-5 (Version None)
Quarter: 2011Q2

REPORT INFORMATION
  Report Type: 
  Country: None (occurrence: None)
  Receive Date: 20110607
  Receipt Date: 20110530
  Transmission Date: 20111010
  Serious: Yes (Hospitalization, Other)
  Sender: FDA-Public Use
  Company Number: JP-ROCHE-720247

PATIENT
  Age: 59 Year
  Sex: Female

DRUGS (7)
  1. PREDNISOLONE [Concomitant]
     Dosage: NOTE: DOSAGE IS UNCERTAIN.
     Route: 065
  2. CYCLOSPORINE [Concomitant]
     Dosage: NOTE: DOSAGE IS UNCERTAIN.
     Route: 065
  3. ANTI-INFLAMMATORY [Concomitant]
     Dosage: NOTE: DOSAGE IS UNCERTAIN
     Route: 065
  4. CELLCEPT [Suspect]
     Dosage: NOTE: DOSAGE IS UNCERTAIN.
     Route: 048
  5. PEGINTERFERON ALFA-2A [Concomitant]
     Dosage: NOTE: DOSAGE IS UNCERTAIN
     Route: 041
     Dates: end: 20090101
  6. RIBAVIRIN [Concomitant]
     Dosage: NOTE: DOSAGE IS UNCERTAIN.
     Route: 065
  7. ANALGESICS [Concomitant]
     Dosage: DOSAGE IS UNCERTAIN.

REACTIONS (3)
  - HAEMOLYTIC ANAEMIA [None]
  - HEPATITIS C [None]
  - CYTOMEGALOVIRUS TEST POSITIVE [None]
